FAERS Safety Report 7265993-6 (Version None)
Quarter: 2011Q1

REPORT INFORMATION
  Report Type: 
  Country: None (occurrence: None)
  Receive Date: 20110131
  Receipt Date: 20110125
  Transmission Date: 20110831
  Serious: Yes (Other)
  Sender: FDA-Public Use
  Company Number: IN-B.I. PHARMACEUTICALS,INC./RIDGEFIELD-2011-DE-00641GD

PATIENT

DRUGS (1)
  1. CLONIDINE [Suspect]

REACTIONS (2)
  - WITHDRAWAL HYPERTENSION [None]
  - DRUG DOSE OMISSION [None]
